FAERS Safety Report 5104275-5 (Version None)
Quarter: 2006Q3

REPORT INFORMATION
  Report Type: 
  Country: None (occurrence: None)
  Receive Date: 20060912
  Receipt Date: 20060912
  Transmission Date: 20061208
  Serious: Yes (Hospitalization, Disabling)
  Sender: FDA-Public Use
  Company Number: None

PATIENT
  Age: 73 Year
  Sex: Female
  Weight: 50.8029 kg

DRUGS (3)
  1. ZOLEDRONATE   5MG [Suspect]
     Indication: BONE DENSITY DECREASED
     Dosage: 5MG   IV
     Route: 042
  2. ZOLEDRONATE   5MG [Suspect]
     Indication: POSTMENOPAUSE
     Dosage: 5MG   IV
     Route: 042
  3. PLACEBO FOR PAIN [Suspect]

REACTIONS (12)
  - ABASIA [None]
  - ARTHRALGIA [None]
  - ASTHENIA [None]
  - BONE PAIN [None]
  - FATIGUE [None]
  - HYPERSOMNIA [None]
  - INTERCEPTED DRUG ADMINISTRATION ERROR [None]
  - MOANING [None]
  - MOVEMENT DISORDER [None]
  - MYALGIA [None]
  - VASODILATATION [None]
  - WRONG TECHNIQUE IN DRUG USAGE PROCESS [None]
